FAERS Safety Report 15489692 (Version 1)
Quarter: 2018Q4

REPORT INFORMATION
  Report Type: Spontaneous
  Country: US (occurrence: US)
  Receive Date: 20181011
  Receipt Date: 20181011
  Transmission Date: 20190205
  Serious: No
  Sender: FDA-Public Use
  Company Number: US-ALLERGAN-1845567US

PATIENT
  Sex: Female
  Weight: 90.7 kg

DRUGS (4)
  1. 2 DIFFERENT EYE INJECTIONS [Concomitant]
     Indication: RETINAL DISORDER
     Dosage: UNK, SINGLE
     Route: 031
  2. LUMIGAN [Suspect]
     Active Substance: BIMATOPROST
     Indication: GLAUCOMA
     Dosage: 2 GTT, QPM
     Route: 047
     Dates: start: 2016
  3. LUMIGAN [Suspect]
     Active Substance: BIMATOPROST
     Dosage: 2 GTT, QPM
     Route: 047
     Dates: start: 2016
  4. COMBIGAN [Suspect]
     Active Substance: BRIMONIDINE TARTRATE\TIMOLOL MALEATE
     Indication: PRODUCT USED FOR UNKNOWN INDICATION
     Dosage: 2 GTT, BID
     Route: 047
     Dates: start: 201806

REACTIONS (3)
  - Accidental exposure to product [Unknown]
  - Product use complaint [Unknown]
  - Incorrect dose administered [Unknown]
